FAERS Safety Report 23540724 (Version 1)
Quarter: 2024Q1

REPORT INFORMATION
  Report Type: Spontaneous
  Country: GB (occurrence: GB)
  Receive Date: 20240219
  Receipt Date: 20240219
  Transmission Date: 20240410
  Serious: Yes (Hospitalization)
  Sender: FDA-Public Use
  Company Number: None

PATIENT
  Age: 38 Year
  Sex: Male

DRUGS (15)
  1. CLARITHROMYCIN [Suspect]
     Active Substance: CLARITHROMYCIN
     Indication: Product used for unknown indication
     Dosage: PATIENT HAD COMPLETED COURSE OF CLARITHROMYCIN PRIOR TO ADMISSION
     Route: 065
     Dates: start: 20230818
  2. WARFARIN [Suspect]
     Active Substance: WARFARIN
     Indication: Product used for unknown indication
     Dosage: AS DIRECTED - SEE WARFARIN NOTE - HELD CURRENTLY
     Route: 065
     Dates: start: 20230728
  3. WARFARIN [Suspect]
     Active Substance: WARFARIN
     Dosage: AS DIRECTED
     Route: 065
     Dates: start: 20230728
  4. WARFARIN [Suspect]
     Active Substance: WARFARIN
     Dosage: AS DIRECTED
     Route: 065
     Dates: start: 20230728
  5. ACTISORB SILVER [Concomitant]
     Indication: Product used for unknown indication
     Dosage: UNK ( 220 DRESSING 10.5 CM X 10.5 CM, AS NECESSARY)
     Route: 065
     Dates: start: 20230728
  6. MINERAL OIL\PARAFFIN [Concomitant]
     Active Substance: MINERAL OIL\PARAFFIN
     Indication: Product used for unknown indication
     Dosage: UNK 9AS NECESSARY))
     Route: 065
     Dates: start: 20211022
  7. ESOMEPRAZOLE [Concomitant]
     Active Substance: ESOMEPRAZOLE
     Indication: Product used for unknown indication
     Dosage: UNK
     Route: 065
  8. KETOPROFEN [Concomitant]
     Active Substance: KETOPROFEN
     Indication: Product used for unknown indication
     Dosage: UNK
     Route: 065
  9. LAMOTRIGINE [Concomitant]
     Active Substance: LAMOTRIGINE
     Indication: Pain in extremity
     Dosage: NOT EP - PER WCNN PAIN CLINIC
     Route: 065
     Dates: start: 20230728
  10. LEVOTHYROXINE [Concomitant]
     Active Substance: LEVOTHYROXINE\LEVOTHYROXINE SODIUM
     Indication: Product used for unknown indication
     Dosage: EVERY MORNING
     Route: 065
     Dates: start: 20230728
  11. NAPROXEN [Concomitant]
     Active Substance: NAPROXEN
     Indication: Product used for unknown indication
     Dosage: UNK
     Route: 065
  12. OMEPRAZOLE [Concomitant]
     Active Substance: OMEPRAZOLE
     Indication: Product used for unknown indication
     Route: 065
     Dates: start: 20230728
  13. ACETAMINOPHEN [Concomitant]
     Active Substance: ACETAMINOPHEN
     Indication: Product used for unknown indication
     Dosage: 1-2 QDS
     Route: 065
     Dates: start: 20230728
  14. SERTRALINE [Concomitant]
     Active Substance: SERTRALINE HYDROCHLORIDE
     Indication: Product used for unknown indication
     Dosage: 100 MG
     Route: 065
     Dates: start: 20230728
  15. MORPHINE SULFATE [Concomitant]
     Active Substance: MORPHINE SULFATE
     Indication: Product used for unknown indication
     Dosage: 60 MG, Q12H
     Route: 065
     Dates: start: 20230728

REACTIONS (3)
  - Haematuria [Recovered/Resolved]
  - Drug interaction [Unknown]
  - International normalised ratio increased [Unknown]
